FAERS Safety Report 5553325-0 (Version None)
Quarter: 2007Q4

REPORT INFORMATION
  Report Type: 
  Country: None (occurrence: None)
  Receive Date: 20071213
  Receipt Date: 20071211
  Transmission Date: 20080405
  Serious: Yes (Other)
  Sender: FDA-Public Use
  Company Number: US-RB-008755-07

PATIENT
  Sex: Female

DRUGS (4)
  1. SUBOXONE [Suspect]
     Indication: DRUG DEPENDENCE
     Route: 060
     Dates: start: 20071126
  2. AMOXICILLIN [Concomitant]
     Indication: TOOTH ABSCESS
     Route: 048
     Dates: start: 20071211
  3. PRILOSEC [Concomitant]
     Indication: DYSPEPSIA
     Dosage: DOSAGE UNKNOWN
     Route: 048
  4. IBUPROFEN [Suspect]
     Indication: TOOTH ABSCESS
     Route: 048
     Dates: start: 20071209, end: 20071210

REACTIONS (3)
  - CONVULSION [None]
  - DRUG WITHDRAWAL SYNDROME [None]
  - VOMITING [None]
